FAERS Safety Report 5446745-6 (Version None)
Quarter: 2007Q3

REPORT INFORMATION
  Report Type: 
  Country: None (occurrence: None)
  Receive Date: 20070907
  Receipt Date: 20070824
  Transmission Date: 20080115
  Serious: No
  Sender: FDA-Public Use
  Company Number: US-BOEHRINGER INGELHEIM PHARMACEUTICALS, INC.-2007-BP-19884BP

PATIENT
  Sex: Female

DRUGS (13)
  1. SPIRIVA [Suspect]
     Indication: CHRONIC OBSTRUCTIVE PULMONARY DISEASE
     Route: 055
     Dates: start: 20060101
  2. ALBUTEROL [Concomitant]
  3. ATROVENT [Concomitant]
  4. PREDNISONE [Concomitant]
  5. NEURONTIN [Concomitant]
     Route: 048
  6. FEXOFENADINE HCL [Concomitant]
     Route: 048
  7. ZOLOFT [Concomitant]
     Route: 048
  8. BENICAR [Concomitant]
     Route: 048
  9. HYDROCHLOROTHIAZIDE [Concomitant]
     Route: 048
  10. XANAX [Concomitant]
     Route: 048
  11. SYNTHROID [Concomitant]
  12. KLOR-CON [Concomitant]
  13. NEXIUM [Concomitant]
     Route: 048

REACTIONS (2)
  - PERIORBITAL HAEMATOMA [None]
  - VISION BLURRED [None]
